FAERS Safety Report 22525111 (Version 1)
Quarter: 2023Q2

REPORT INFORMATION
  Report Type: Spontaneous
  Country: GB (occurrence: GB)
  Receive Date: 20230606
  Receipt Date: 20230606
  Transmission Date: 20230722
  Serious: Yes (Other)
  Sender: FDA-Public Use
  Company Number: GB-ACRAF SpA-2023-031009

PATIENT

DRUGS (4)
  1. XCOPRI [Suspect]
     Active Substance: CENOBAMATE
     Indication: Epilepsy
     Dosage: 100 MILLIGRAM, QD
     Route: 048
  2. CLOBAZAM [Concomitant]
     Active Substance: CLOBAZAM
     Indication: Product used for unknown indication
     Dosage: 10 MG AT NIGHT SCOPE FOR INCREASING TO TWICE DAILY DURING THE MENSTRUAL PERIOD
     Route: 065
  3. OXCARBAZEPINE [Concomitant]
     Active Substance: OXCARBAZEPINE
     Indication: Product used for unknown indication
     Dosage: 300 MG (5 ML) IN THE MORNING, 450 MG (7.5 ML) AT NIGHT
     Route: 065
  4. PHENOBARBITONE                     /00023202/ [Concomitant]
     Indication: Product used for unknown indication
     Dosage: 27 MG (9 ML) AT NIGHT  TO LEAVE UNCHANGED FOR NOW
     Route: 065

REACTIONS (1)
  - Nephrolithiasis [Unknown]
